FAERS Safety Report 9111532 (Version 3)
Quarter: 2014Q4

REPORT INFORMATION
  Report Type: Spontaneous
  Country: US (occurrence: US)
  Receive Date: 20130219
  Receipt Date: 20141205
  Transmission Date: 20150529
  Serious: No
  Sender: FDA-Public Use
  Company Number: US-BRISTOL-MYERS SQUIBB COMPANY-17224676

PATIENT
  Age: 57 Year
  Sex: Female
  Weight: 57.59 kg

DRUGS (5)
  1. CALCIUM + VITAMIN D [Concomitant]
     Active Substance: CALCIUM\VITAMIN D
  2. ABATACEPT SUBQ INJECTION 125MG/ML [Suspect]
     Active Substance: ABATACEPT
     Indication: RHEUMATOID ARTHRITIS
     Dosage: LAST INJECTION:  14DEC2012?125MG/ML
     Route: 058
     Dates: start: 201212
  3. FOLIC ACID. [Concomitant]
     Active Substance: FOLIC ACID
  4. ENBREL [Suspect]
     Active Substance: ETANERCEPT
  5. METHOTREXATE (METHOTREXATE SODIUM) [Concomitant]
     Active Substance: METHOTREXATE SODIUM

REACTIONS (6)
  - Fatigue [Unknown]
  - Nasopharyngitis [Unknown]
  - Hyperaesthesia [Unknown]
  - Musculoskeletal stiffness [Unknown]
  - Somnolence [Unknown]
  - Rheumatoid arthritis [Recovered/Resolved]

NARRATIVE: CASE EVENT DATE: 2013
